FAERS Safety Report 4462153-9 (Version None)
Quarter: 2004Q3

REPORT INFORMATION
  Report Type: 
  Country: None (occurrence: None)
  Receive Date: 20040929
  Receipt Date: 20040921
  Transmission Date: 20050211
  Serious: Yes (Disabling)
  Sender: FDA-Public Use
  Company Number: US-MERCK-0409USA01845

PATIENT
  Age: 57 Year
  Sex: Female

DRUGS (6)
  1. ASPIRIN [Concomitant]
     Route: 065
  2. ALPHAGAN [Concomitant]
     Route: 065
  3. IMDUR [Concomitant]
     Route: 065
  4. TOPROL-XL [Concomitant]
     Route: 065
  5. LOPRESSOR [Concomitant]
     Route: 065
  6. ZOCOR [Suspect]
     Indication: BLOOD CHOLESTEROL INCREASED
     Route: 048

REACTIONS (2)
  - ARTHRALGIA [None]
  - LIMB DISCOMFORT [None]
